FAERS Safety Report 5950019-4 (Version None)
Quarter: 2008Q4

REPORT INFORMATION
  Report Type: 
  Country: None (occurrence: None)
  Receive Date: 20081111
  Receipt Date: 20080417
  Transmission Date: 20090506
  Serious: No
  Sender: FDA-Public Use
  Company Number: US-BRISTOL-MYERS SQUIBB COMPANY-14105738

PATIENT
  Age: 36 Year
  Sex: Male

DRUGS (5)
  1. SUSTIVA [Suspect]
     Indication: HIV INFECTION
     Dosage: 1DOSAGE FORM = 1TABS
     Route: 048
     Dates: start: 19980101
  2. ATRIPLA [Suspect]
     Indication: HIV INFECTION
     Dosage: 1 DOSAGE FORM = 1TABS
     Route: 048
     Dates: start: 20070601
  3. TENOFOVIR [Suspect]
     Dates: start: 20070601
  4. ABACAVIR [Suspect]
  5. ZIDOVUDINE [Suspect]
     Dates: start: 20060701, end: 20070601

REACTIONS (1)
  - LIPOHYPERTROPHY [None]
